FAERS Safety Report 17643266 (Version 1)
Quarter: 2020Q2

REPORT INFORMATION
  Report Type: Spontaneous
  Country: US (occurrence: US)
  Receive Date: 20200407
  Receipt Date: 20200407
  Transmission Date: 20200713
  Serious: No
  Sender: FDA-Public Use
  Company Number: None

PATIENT
  Age: 71 Year
  Sex: Male
  Weight: 99.27 kg

DRUGS (22)
  1. METOPROLOL 100MG, ORAL [Concomitant]
  2. OMEPRAZOLE 20MG, ORAL [Concomitant]
  3. FUROSEMIDE 20MG, ORAL [Concomitant]
  4. MECLIZINE 25MG, ORAL [Concomitant]
  5. VITAMIN B COMPLEX [Concomitant]
     Active Substance: CYANOCOBALAMIN\DEXPANTHENOL\NIACINAMIDE\PYRIDOXINE HYDROCHLORIDE\RIBOFLAVIN 5^-PHOSPHATE SODIUM\THIAMINE HYDROCHLORIDE\VITAMIN B COMPLEX
  6. ATORVASTATIN 80MG, ORAL [Concomitant]
  7. LEVOTHYROXINE SODIUM 137 MCG, ORAL [Concomitant]
  8. LOPERAMIDE 2MG, ORAL [Concomitant]
  9. PROAIR 108MG, INHALER [Concomitant]
  10. TRAZODONE 100MG, ORAL [Concomitant]
  11. DIAZEPAM 5MG, ORAL [Concomitant]
  12. LISINOPRIL 40 MG, ORAL [Concomitant]
  13. METFORMIN 1000MG, ORAL [Concomitant]
  14. ANORO ELLIPTA 62.5MG - 25MG, INHALER [Concomitant]
  15. CAPECITABINE. [Suspect]
     Active Substance: CAPECITABINE
     Indication: OESOPHAGEAL CARCINOMA
     Route: 048
     Dates: start: 20190813, end: 20200407
  16. MULTIVITAMIN WITH IRON AND FOLIC ACID [Concomitant]
  17. NORCO 5- 325MG, ORAL [Concomitant]
  18. TAMSULOSIN 0.4MG, ORAL [Concomitant]
  19. ASCORBIC ACID 1000MG, ORAL [Concomitant]
  20. CITALOPRAM 20MG ,ORAL [Concomitant]
  21. RANITIDINE 150MG, ORAL [Concomitant]
  22. ALBUTEROL 108 MG, ORAL [Concomitant]

REACTIONS (1)
  - Palmar-plantar erythrodysaesthesia syndrome [None]

NARRATIVE: CASE EVENT DATE: 20200407
